FAERS Safety Report 6940424-1 (Version None)
Quarter: 2010Q3

REPORT INFORMATION
  Report Type: 
  Country: None (occurrence: None)
  Receive Date: 20100825
  Receipt Date: 20100812
  Transmission Date: 20110219
  Serious: Yes (Other)
  Sender: FDA-Public Use
  Company Number: PHHY2010US53267

PATIENT
  Sex: Female

DRUGS (2)
  1. FEMARA [Suspect]
     Indication: BREAST CANCER
     Route: 048
  2. FEMARA [Suspect]
     Dosage: 25 MG DAILY
     Route: 048
     Dates: start: 20100811

REACTIONS (2)
  - MOUTH HAEMORRHAGE [None]
  - OCULAR HYPERAEMIA [None]
